FAERS Safety Report 4600560-1 (Version None)
Quarter: 2005Q1

REPORT INFORMATION
  Report Type: 
  Country: None (occurrence: None)
  Receive Date: 20050307
  Receipt Date: 20050217
  Transmission Date: 20050727
  Serious: Yes (Life-Threatening)
  Sender: FDA-Public Use
  Company Number: ES-ABBOTT-05P-144-0291275-00

PATIENT
  Age: 77 Year
  Sex: Male

DRUGS (20)
  1. CLARITHROMYCIN [Suspect]
     Indication: DYSPNOEA
     Dates: start: 20031201
  2. CLARITHROMYCIN [Suspect]
     Indication: COUGH
  3. CLARITHROMYCIN [Suspect]
     Indication: PRODUCTIVE COUGH
  4. NIFEDIPINE [Interacting]
     Indication: HYPERTENSION
     Route: 048
  5. NIFEDIPINE [Interacting]
     Route: 048
  6. CAPTOPRIL [Concomitant]
     Indication: HYPERTENSION
     Route: 048
  7. CAPTOPRIL [Concomitant]
     Route: 048
  8. DOXAZOSIN [Concomitant]
     Indication: HYPERTENSION
     Route: 048
  9. DOXAZOSIN [Concomitant]
     Route: 048
  10. VALSARTAN [Concomitant]
     Indication: DRUG USE FOR UNKNOWN INDICATION
  11. UNSPECIFIED MUCOLYTIC [Concomitant]
     Indication: DYSPNOEA
     Dates: start: 20031201
  12. UNSPECIFIED MUCOLYTIC [Concomitant]
     Indication: COUGH
  13. UNSPECIFIED MUCOLYTIC [Concomitant]
     Indication: PRODUCTIVE COUGH
  14. FUROSEMIDE [Concomitant]
     Indication: DRUG USE FOR UNKNOWN INDICATION
     Route: 042
  15. FUROSEMIDE [Concomitant]
     Route: 042
  16. FUROSEMIDE [Concomitant]
     Route: 048
  17. ERYTHROMYCIN [Concomitant]
     Indication: DRUG USE FOR UNKNOWN INDICATION
  18. CEFUROXIME [Concomitant]
     Indication: DRUG USE FOR UNKNOWN INDICATION
     Route: 042
  19. CEFUROXIME [Concomitant]
     Route: 042
  20. CEFUROXIME [Concomitant]
     Route: 048

REACTIONS (20)
  - ABDOMINAL PAIN [None]
  - ATRIOVENTRICULAR BLOCK [None]
  - BLOOD PRESSURE INADEQUATELY CONTROLLED [None]
  - CONDITION AGGRAVATED [None]
  - CYANOSIS [None]
  - DRUG INTERACTION [None]
  - ELECTROCARDIOGRAM QRS COMPLEX SHORTENED [None]
  - HAEMODIALYSIS [None]
  - HYPERGLYCAEMIA [None]
  - HYPERKALAEMIA [None]
  - HYPOCALCAEMIA [None]
  - HYPONATRAEMIA [None]
  - METABOLIC ACIDOSIS [None]
  - MULTI-ORGAN FAILURE [None]
  - PERIPHERAL COLDNESS [None]
  - PULSE ABSENT [None]
  - RENAL FAILURE CHRONIC [None]
  - RESPIRATORY FAILURE [None]
  - SHOCK [None]
  - VASCULAR RESISTANCE SYSTEMIC DECREASED [None]
